FAERS Safety Report 12718439 (Version 1)
Quarter: 2016Q3

REPORT INFORMATION
  Report Type: Not Available
  Country: None (occurrence: US)
  Receive Date: 20160906
  Receipt Date: 20160906
  Transmission Date: 20161109
  Serious: No
  Sender: FDA-Public Use
  Company Number: US-AKORN-20538

PATIENT

DRUGS (1)
  1. GENTAMICIN SULFATE SOLUTION 0.3% [Suspect]
     Active Substance: GENTAMICIN SULFATE

REACTIONS (2)
  - Ocular hyperaemia [Unknown]
  - Ocular hyperaemia [None]
